FAERS Safety Report 20012701 (Version 1)
Quarter: 2021Q4

REPORT INFORMATION
  Report Type: Spontaneous
  Country: PT (occurrence: PT)
  Receive Date: 20211029
  Receipt Date: 20211029
  Transmission Date: 20220304
  Serious: Yes (Other)
  Sender: FDA-Public Use
  Company Number: PT-PFIZER INC-2021480745

PATIENT
  Age: 20 Year
  Sex: Male

DRUGS (5)
  1. LEVETIRACETAM [Suspect]
     Active Substance: LEVETIRACETAM
     Indication: Altered state of consciousness
     Dosage: 2 G
  2. LEVETIRACETAM [Suspect]
     Active Substance: LEVETIRACETAM
     Indication: Clonus
  3. VALPROATE SODIUM [Concomitant]
     Active Substance: VALPROATE SODIUM
     Indication: Clonus
     Dosage: 1 G
  4. VALPROATE SODIUM [Concomitant]
     Active Substance: VALPROATE SODIUM
     Indication: Altered state of consciousness
  5. DIAZEPAM [Concomitant]
     Active Substance: DIAZEPAM
     Indication: Clonus
     Dosage: 10 MG

REACTIONS (1)
  - Drug ineffective [Unknown]
